FAERS Safety Report 6861427-1 (Version None)
Quarter: 2010Q3

REPORT INFORMATION
  Report Type: 
  Country: None (occurrence: None)
  Receive Date: 20100715
  Receipt Date: 20100705
  Transmission Date: 20110219
  Serious: Yes (Other)
  Sender: FDA-Public Use
  Company Number: 014948

PATIENT
  Sex: Male

DRUGS (4)
  1. VIMPAT [Suspect]
     Indication: EPILEPSY
     Dosage: (50 MG QD ORAL)
     Route: 048
     Dates: start: 20100503, end: 20100513
  2. LAMICTAL [Concomitant]
  3. VALPROATE SODIUM [Concomitant]
  4. URBANYL [Concomitant]

REACTIONS (10)
  - CONDITION AGGRAVATED [None]
  - EPILEPSY [None]
  - FALL [None]
  - FATIGUE [None]
  - HYPERSOMNIA [None]
  - INSOMNIA [None]
  - MUSCLE SPASMS [None]
  - SEDATION [None]
  - TREATMENT FAILURE [None]
  - TREMOR [None]
